FAERS Safety Report 20361226 (Version 1)
Quarter: 2022Q1

REPORT INFORMATION
  Report Type: Spontaneous
  Country: US (occurrence: None)
  Receive Date: 20220120
  Receipt Date: 20220120
  Transmission Date: 20220423
  Serious: Yes (Other)
  Sender: FDA-Public Use
  Company Number: None

PATIENT
  Age: 63 Year
  Sex: Male

DRUGS (3)
  1. AXICABTAGENE CILOLEUCEL [Suspect]
     Active Substance: AXICABTAGENE CILOLEUCEL
  2. TOCILIZUMAB [Concomitant]
     Active Substance: TOCILIZUMAB
  3. DEXAMETHASONE [Concomitant]
     Active Substance: DEXAMETHASONE

REACTIONS (22)
  - Chills [None]
  - Diarrhoea [None]
  - Insomnia [None]
  - Migraine [None]
  - Vision blurred [None]
  - Photophobia [None]
  - Hyperacusis [None]
  - Fall [None]
  - Dizziness [None]
  - Tachycardia [None]
  - Fatigue [None]
  - Decreased appetite [None]
  - Nausea [None]
  - Hypotension [None]
  - Tachypnoea [None]
  - Confusional state [None]
  - Chest X-ray abnormal [None]
  - Impulsive behaviour [None]
  - Aphasia [None]
  - Pyrexia [None]
  - Vomiting [None]
  - Joint injury [None]

NARRATIVE: CASE EVENT DATE: 20211218
